FAERS Safety Report 12544904 (Version 1)
Quarter: 2016Q3

REPORT INFORMATION
  Report Type: Spontaneous
  Country: US (occurrence: US)
  Receive Date: 20160711
  Receipt Date: 20160711
  Transmission Date: 20161109
  Serious: Yes (Hospitalization, Other)
  Sender: FDA-Public Use
  Company Number: US-GLAXOSMITHKLINE-US2016094125

PATIENT
  Age: 79 Year
  Sex: Female

DRUGS (5)
  1. VENTOLIN [Suspect]
     Active Substance: ALBUTEROL SULFATE
     Indication: PRODUCT USED FOR UNKNOWN INDICATION
  2. PNEUMOCOCCAL VACCINE POLYVALENT NOS [Suspect]
     Active Substance: PNEUMOCOCCAL VACCINE POLYVALENT
     Indication: PROPHYLAXIS
  3. NEBULIZER (NAME UNKNOWN) [Concomitant]
     Active Substance: DEVICE
  4. FLOVENT [Suspect]
     Active Substance: FLUTICASONE PROPIONATE
     Indication: PRODUCT USED FOR UNKNOWN INDICATION
  5. SEASONAL INFLUENZA VACCINE [Suspect]
     Active Substance: INFLUENZA VIRUS VACCINE
     Indication: PROPHYLAXIS

REACTIONS (11)
  - Malaise [Unknown]
  - Cough [Unknown]
  - Ear pain [Unknown]
  - Swelling [Unknown]
  - Vaccination failure [Unknown]
  - Pneumonia [Unknown]
  - Feeling abnormal [Unknown]
  - Influenza [Unknown]
  - Bronchitis [Unknown]
  - Haemoptysis [Unknown]
  - Breast cancer [Unknown]

NARRATIVE: CASE EVENT DATE: 201602
